FAERS Safety Report 6610852-2 (Version None)
Quarter: 2010Q1

REPORT INFORMATION
  Report Type: 
  Country: None (occurrence: None)
  Receive Date: 20100219
  Receipt Date: 20100209
  Transmission Date: 20100710
  Serious: Yes (Other)
  Sender: FDA-Public Use
  Company Number: 006552

PATIENT

DRUGS (1)
  1. VIMPAT [Suspect]
     Indication: MOOD SWINGS
     Dosage: 25 MG ORAL
     Route: 048

REACTIONS (2)
  - CONVULSION [None]
  - OFF LABEL USE [None]
